FAERS Safety Report 11440489 (Version 1)
Quarter: 2015Q3

REPORT INFORMATION
  Report Type: Spontaneous
  Country: US (occurrence: None)
  Receive Date: 20150831
  Receipt Date: 20150831
  Transmission Date: 20151125
  Serious: No
  Sender: FDA-Public Use
  Company Number: None

PATIENT
  Age: 68 Year
  Sex: Female
  Weight: 91.63 kg

DRUGS (12)
  1. LOSARTAN. [Concomitant]
     Active Substance: LOSARTAN
  2. COLOZAL [Concomitant]
  3. VITAMIN D3 [Concomitant]
     Active Substance: CHOLECALCIFEROL
  4. MERCAPTOPURINE. [Concomitant]
     Active Substance: MERCAPTOPURINE
  5. FISH OIL [Concomitant]
     Active Substance: FISH OIL
  6. CERTIRIZINE [Concomitant]
  7. PREDNISONE. [Suspect]
     Active Substance: PREDNISONE
     Indication: COLITIS ULCERATIVE
     Dosage: BEGAN WITH 4 A DAY AND DECENDS; TILL MEDICATION IS GONE
     Route: 048
  8. MULTI-VITAMIN [Concomitant]
     Active Substance: .ALPHA.-TOCOPHEROL ACETATE, DL-\ASCORBIC ACID\CYANOCOBALAMIN\FLUORIDE ION\FOLIC ACID\NIACIN\PYRIDOXINE\RIBOFLAVIN\THIAMINE\VITAMIN A\VITAMIN D
  9. OMEPARZOLE [Concomitant]
  10. CALCIUM [Concomitant]
     Active Substance: CALCIUM
  11. CRANBERRY FRUIT [Concomitant]
  12. COLACE [Concomitant]
     Active Substance: DOCUSATE SODIUM

REACTIONS (3)
  - Road traffic accident [None]
  - Loss of consciousness [None]
  - Somnolence [None]

NARRATIVE: CASE EVENT DATE: 20150825
